FAERS Safety Report 5017063-5 (Version None)
Quarter: 2006Q2

REPORT INFORMATION
  Report Type: 
  Country: None (occurrence: None)
  Receive Date: 20060526
  Receipt Date: 20060518
  Transmission Date: 20061013
  Serious: Yes (Other)
  Sender: FDA-Public Use
  Company Number: 2006BH010023

PATIENT
  Sex: Female

DRUGS (1)
  1. SODIUM CHLORIDE 0.9% [Suspect]
     Indication: HYPERSENSITIVITY
     Dosage: SEE IMAGE
     Route: 042

REACTIONS (5)
  - BLOOD PRESSURE INCREASED [None]
  - HEART RATE INCREASED [None]
  - HYPERSENSITIVITY [None]
  - INFUSION RELATED REACTION [None]
  - MYOCARDIAL INFARCTION [None]
